FAERS Safety Report 10340490 (Version 1)
Quarter: 2014Q3

REPORT INFORMATION
  Report Type: Spontaneous
  Country: US (occurrence: US)
  Receive Date: 20140724
  Receipt Date: 20140724
  Transmission Date: 20150326
  Serious: Yes (Other)
  Sender: FDA-Public Use
  Company Number: US-PFIZER INC-2014202273

PATIENT
  Age: 52 Year
  Sex: Female
  Weight: 72.56 kg

DRUGS (1)
  1. DUAVEE [Suspect]
     Active Substance: BAZEDOXIFENE ACETATE\ESTROGENS, CONJUGATED
     Indication: MENOPAUSAL SYMPTOMS
     Dosage: UNK, 1X/DAY
     Route: 048

REACTIONS (1)
  - Uterine haemorrhage [Unknown]

NARRATIVE: CASE EVENT DATE: 201406
